FAERS Safety Report 4665770-6 (Version None)
Quarter: 2005Q2

REPORT INFORMATION
  Report Type: 
  Country: None (occurrence: None)
  Receive Date: 20050517
  Receipt Date: 20050517
  Transmission Date: 20051028
  Serious: Yes (Life-Threatening, Hospitalization)
  Sender: FDA-Public Use
  Company Number: None

PATIENT
  Age: 4 Year
  Sex: Male
  Weight: 19.5047 kg

DRUGS (2)
  1. CHILDREN'S MOTRIN [Suspect]
     Indication: GASTROINTESTINAL HAEMORRHAGE
     Dosage: 1 AND 1/2 TSP
     Dates: start: 20050511
  2. ZITHROMAX [Suspect]
     Dosage: 1 TSP OF 200MG/5ML
     Dates: start: 20050511

REACTIONS (4)
  - BLOOD PRESSURE DECREASED [None]
  - EPISTAXIS [None]
  - HAEMATEMESIS [None]
  - HAEMOGLOBIN DECREASED [None]
